FAERS Safety Report 8953743 (Version 1)
Quarter: 2012Q4

REPORT INFORMATION
  Report Type: 
  Country: IT (occurrence: IT)
  Receive Date: 20121206
  Receipt Date: 20121206
  Transmission Date: 20130627
  Serious: Yes (Other)
  Sender: FDA-Public Use
  Company Number: IT-TEVA-373819ISR

PATIENT
  Age: 60 Year
  Sex: Male

DRUGS (4)
  1. PACLITAXEL TEVA [Suspect]
     Indication: SQUAMOUS CELL CARCINOMA
     Dosage: 100 Milligram Daily;
     Route: 041
     Dates: start: 20121025, end: 20121123
  2. ZANTAC [Concomitant]
     Dosage: 50 Milligram Daily;
     Route: 042
     Dates: start: 20120419, end: 20121123
  3. TRIMETON [Concomitant]
     Dosage: 10 Milligram Daily;
     Route: 042
     Dates: start: 20121025, end: 20121123
  4. SOLDESAM [Concomitant]
     Dosage: 12 Milligram Daily;
     Route: 042
     Dates: start: 20120419, end: 20121123

REACTIONS (4)
  - Confusional state [Recovered/Resolved]
  - Dyspnoea [Recovered/Resolved]
  - Erythema [Recovered/Resolved]
  - Agitation [Recovered/Resolved]
